FAERS Safety Report 9200780 (Version 1)
Quarter: 2013Q1

REPORT INFORMATION
  Report Type: Spontaneous
  Country: GB (occurrence: None)
  Receive Date: 20130327
  Receipt Date: 20130327
  Transmission Date: 20140127
  Serious: Yes (Hospitalization)
  Sender: FDA-Public Use
  Company Number: 2013-05298

PATIENT
  Age: 41 Year
  Sex: Male

DRUGS (1)
  1. METFORMIN HYDROCHLORIDE (METFORMIN HYDROCHLORIDE) [Suspect]
     Indication: DIABETES MELLITUS

REACTIONS (2)
  - Cerebrovascular accident [None]
  - Lactic acidosis [None]
